FAERS Safety Report 10039232 (Version 3)
Quarter: 2014Q2

REPORT INFORMATION
  Report Type: Report from Study
  Country: CA (occurrence: CA)
  Receive Date: 20140326
  Receipt Date: 20140611
  Transmission Date: 20141212
  Serious: Yes (Hospitalization)
  Sender: FDA-Public Use
  Company Number: PHHY2013CA029701

PATIENT
  Age: 24 Year
  Sex: Male

DRUGS (9)
  1. EXJADE [Suspect]
     Indication: HAEMOCHROMATOSIS
     Dosage: 500 MG, QD
     Route: 048
     Dates: start: 20130301
  2. EXJADE [Suspect]
     Dosage: 500 MG, TID
     Route: 048
  3. EXJADE [Suspect]
     Dosage: ALTERNATING DOSES OF 500 MG AND 100 MG QD
     Route: 048
     Dates: start: 20130417
  4. EXJADE [Suspect]
     Dosage: 500 MG, QD
     Route: 048
  5. EXJADE [Suspect]
     Dosage: ALTERNATING DOSES OF 500 MG AND 1000 MG) QD
     Route: 048
  6. EXJADE [Suspect]
     Dosage: 1000 MG, EVERY DAY
     Route: 048
     Dates: end: 20140205
  7. FOLIC ACID [Concomitant]
     Dosage: 5 MG, QD
  8. FLOVENT [Concomitant]
     Dosage: UNK UKN, UNK
  9. VENTOLIN [Concomitant]
     Dosage: UNK UKN, PRN

REACTIONS (5)
  - Pancreatitis acute [Unknown]
  - Nausea [Unknown]
  - Infrequent bowel movements [Unknown]
  - Blood creatinine increased [Unknown]
  - Serum ferritin increased [Recovering/Resolving]
